FAERS Safety Report 23518148 (Version 4)
Quarter: 2024Q2

REPORT INFORMATION
  Report Type: Spontaneous
  Country: US (occurrence: US)
  Receive Date: 20240213
  Receipt Date: 20240517
  Transmission Date: 20240716
  Serious: No
  Sender: FDA-Public Use
  Company Number: US-BRISTOL-MYERS SQUIBB COMPANY-2024-015361

PATIENT
  Age: 59 Year
  Sex: Female

DRUGS (3)
  1. REVLIMID [Suspect]
     Active Substance: LENALIDOMIDE
     Indication: Plasma cell myeloma
     Route: 048
  2. REVLIMID [Suspect]
     Active Substance: LENALIDOMIDE
     Route: 048
  3. REVLIMID [Suspect]
     Active Substance: LENALIDOMIDE
     Route: 048

REACTIONS (10)
  - Laboratory test abnormal [Unknown]
  - Off label use [Unknown]
  - Cough [Unknown]
  - Product dose omission issue [Unknown]
  - Headache [Unknown]
  - Dizziness [Unknown]
  - Constipation [Unknown]
  - Fall [Unknown]
  - Animal attack [Unknown]
  - Contusion [Unknown]
